FAERS Safety Report 16941190 (Version 1)
Quarter: 2019Q4

REPORT INFORMATION
  Report Type: Other
  Country: DE (occurrence: DE)
  Receive Date: 20191021
  Receipt Date: 20191021
  Transmission Date: 20200122
  Serious: Yes (Other)
  Sender: FDA-Public Use
  Company Number: DE-COVIS PHARMA B.V.-2019COV00254

PATIENT
  Sex: Female
  Weight: 58 kg

DRUGS (9)
  1. ALVESCO [Suspect]
     Active Substance: CICLESONIDE
     Indication: ASTHMA
     Dosage: 160 ?G, 1X/DAY AT HS
     Dates: start: 20180619, end: 20180814
  2. SEREVENT DISKUS [Concomitant]
     Active Substance: SALMETEROL XINAFOATE
     Dosage: 50-100 ?G, 1X/DAY IF NEEDED
     Route: 055
     Dates: start: 20181004, end: 20190409
  3. UNKNOWN MEDICATION [Concomitant]
     Active Substance: UNSPECIFIED INGREDIENT
     Dosage: 100 MG, 1X/DAY
     Route: 048
     Dates: start: 20180619, end: 20180810
  4. NOVOPULMON NOVOLIZER [Suspect]
     Active Substance: BUDESONIDE
     Indication: ASTHMA
     Dosage: 0.8 MG, 2X/DAY
     Dates: start: 20180815, end: 20190409
  5. SALBUHEXAL [Concomitant]
     Active Substance: ALBUTEROL
     Dosage: UNK UNK, AS NEEDED
     Route: 055
  6. L-THYROX [Concomitant]
     Active Substance: LEVOTHYROXINE SODIUM
     Dosage: 37.5 ?G, 1X/DAY
     Route: 048
     Dates: start: 20180619, end: 20190409
  7. AERODUR [Concomitant]
     Dosage: UNK UNK, AS NEEDED
     Route: 055
  8. FAMENITA [Concomitant]
     Active Substance: PROGESTERONE
     Dosage: 100 MG, 1X/DAY
     Route: 048
     Dates: start: 20180619, end: 20180810
  9. VIANI [Concomitant]
     Active Substance: FLUTICASONE PROPIONATE\SALMETEROL XINAFOATE
     Dosage: UNK
     Dates: start: 20180619, end: 20180808

REACTIONS (3)
  - Amniotic fluid volume increased [Recovered/Resolved]
  - Gestational diabetes [Recovered/Resolved]
  - Exposure during pregnancy [Unknown]
